FAERS Safety Report 12737523 (Version 1)
Quarter: 2016Q3

REPORT INFORMATION
  Report Type: Spontaneous
  Country: BR (occurrence: BR)
  Receive Date: 20160912
  Receipt Date: 20160912
  Transmission Date: 20161109
  Serious: Yes (Hospitalization, Disabling, Other)
  Sender: FDA-Public Use
  Company Number: BR-ABBVIE-16P-020-1721968-00

PATIENT
  Sex: Female
  Weight: 72 kg

DRUGS (4)
  1. KALETRA [Suspect]
     Active Substance: LOPINAVIR\RITONAVIR
     Dosage: 200/50MG
     Route: 048
  2. KALETRA [Suspect]
     Active Substance: LOPINAVIR\RITONAVIR
     Indication: HIV INFECTION
     Dosage: 200/50MG
     Route: 048
     Dates: start: 2006
  3. TENOFOVIR [Concomitant]
     Active Substance: TENOFOVIR
     Indication: HIV INFECTION
     Route: 048
     Dates: start: 2010
  4. LAMIVUDINE. [Concomitant]
     Active Substance: LAMIVUDINE
     Indication: HIV INFECTION
     Route: 048
     Dates: start: 2010

REACTIONS (14)
  - Psychotic disorder [Unknown]
  - Mobility decreased [Unknown]
  - Fall [Unknown]
  - Scar [Unknown]
  - Syncope [Unknown]
  - Loss of consciousness [Unknown]
  - Hypoaesthesia [Not Recovered/Not Resolved]
  - Amnesia [Not Recovered/Not Resolved]
  - Cerebral toxoplasmosis [Recovering/Resolving]
  - Malaise [Unknown]
  - Confusional state [Unknown]
  - Somnolence [Unknown]
  - Syncope [Recovered/Resolved]
  - Central nervous system infection [Unknown]

NARRATIVE: CASE EVENT DATE: 2010
